FAERS Safety Report 9396154 (Version 1)
Quarter: 2013Q3

REPORT INFORMATION
  Report Type: Spontaneous
  Country: US (occurrence: US)
  Receive Date: 20130711
  Receipt Date: 20130711
  Transmission Date: 20140515
  Serious: Yes (Hospitalization)
  Sender: FDA-Public Use
  Company Number: US-B.I. PHARMACEUTICALS,INC./RIDGEFIELD-2013-BI-19824BP

PATIENT
  Age: 58 Year
  Sex: Female

DRUGS (9)
  1. TRADJENTA [Suspect]
     Indication: DIABETES MELLITUS
     Dosage: 5 MG
     Route: 048
  2. CELEXA [Concomitant]
     Route: 048
  3. METFORMIN [Concomitant]
     Route: 048
  4. RANITIDINE [Concomitant]
     Indication: GASTROOESOPHAGEAL REFLUX DISEASE
     Route: 048
  5. NORVASC [Concomitant]
     Route: 048
  6. LIPITOR [Concomitant]
     Route: 048
  7. FLEXERIL [Concomitant]
     Route: 048
  8. NEURONTIN [Concomitant]
     Route: 048
  9. BYSTOLIC [Concomitant]
     Route: 048

REACTIONS (6)
  - Electrolyte imbalance [Recovered/Resolved]
  - Dehydration [Recovered/Resolved]
  - Diarrhoea [Recovered/Resolved]
  - Hypersomnia [Recovered/Resolved]
  - Blood glucose increased [Recovered/Resolved]
  - Asthenia [Not Recovered/Not Resolved]
